FAERS Safety Report 16529036 (Version 6)
Quarter: 2019Q4

REPORT INFORMATION
  Report Type: Spontaneous
  Country: FR (occurrence: FR)
  Receive Date: 20190703
  Receipt Date: 20191219
  Transmission Date: 20200122
  Serious: Yes (Hospitalization, Other)
  Sender: FDA-Public Use
  Company Number: FR-009507513-1906FRA004048

PATIENT
  Age: 34 Year
  Sex: Female

DRUGS (9)
  1. PROGESTERONE. [Suspect]
     Active Substance: PROGESTERONE
     Indication: OVULATION INDUCTION
     Dosage: 4 UG/LITRE, (4 CAPSULES PER DAY FOR 15 DAYS)
     Route: 048
     Dates: start: 19980205
  2. DECAPEPTYL (ACETATE) [Suspect]
     Active Substance: TRIPTORELIN ACETATE
     Indication: IN VITRO FERTILISATION
     Dosage: 1 UG/LITRE (1 VIAL)
     Route: 058
     Dates: start: 19980107, end: 19980121
  3. GONADOTROPIN, CHORIONIC [Suspect]
     Active Substance: CHORIOGONADOTROPIN ALFA
     Dosage: 1500 IU
     Route: 030
     Dates: start: 19980209
  4. GONADOTROPIN, CHORIONIC [Suspect]
     Active Substance: CHORIOGONADOTROPIN ALFA
     Indication: OVULATION INDUCTION
     Dosage: 10000 IU DOSE USED TO INDUCE OVULATION
     Route: 030
     Dates: start: 19980201, end: 19980201
  5. GONADOTROPIN, CHORIONIC [Suspect]
     Active Substance: CHORIOGONADOTROPIN ALFA
     Dosage: 1500 IU
     Route: 030
     Dates: start: 19980206
  6. METRODIN [Suspect]
     Active Substance: UROFOLLITROPIN
     Indication: IN VITRO FERTILISATION
     Dosage: DOSE 1(UNIT UNKNOWN), QD (1 IN 1 DAY)
     Route: 030
     Dates: start: 19980122, end: 19980127
  7. DECAPEPTYL (ACETATE) [Suspect]
     Active Substance: TRIPTORELIN ACETATE
     Dosage: 0.5 UG/LITRE (1/2 A VIAL PER DAY WITH COMBINATION) (1D)
     Route: 058
     Dates: start: 19980122, end: 19980127
  8. DECAPEPTYL (ACETATE) [Suspect]
     Active Substance: TRIPTORELIN ACETATE
     Dosage: 3 UG/LITRE (THREE VIALS PER DAY) (1D)
     Route: 030
     Dates: start: 19980122, end: 19980127
  9. MENOTROPINS [Suspect]
     Active Substance: MENOTROPINS
     Indication: IN VITRO FERTILISATION
     Dosage: 3 UG/LITRE (3 VIALS PER DAY)
     Route: 030
     Dates: start: 19980122, end: 19980127

REACTIONS (4)
  - Ovarian hyperstimulation syndrome [Recovering/Resolving]
  - Pleural effusion [Recovering/Resolving]
  - Incorrect dose administered [Recovering/Resolving]
  - Maternal exposure before pregnancy [Unknown]

NARRATIVE: CASE EVENT DATE: 19980210
